FAERS Safety Report 4807749-7 (Version None)
Quarter: 2005Q4

REPORT INFORMATION
  Report Type: 
  Country: None (occurrence: None)
  Receive Date: 20051019
  Receipt Date: 20051005
  Transmission Date: 20060501
  Serious: Yes (Hospitalization)
  Sender: FDA-Public Use
  Company Number: 430015M05FRA

PATIENT
  Age: 64 Year
  Sex: Female

DRUGS (7)
  1. NOVANTRONE [Suspect]
     Indication: BREAST CANCER
     Dosage: INTRAVENOUS (NOT OTHERWISE SPECIFIED)
     Route: 042
     Dates: start: 19990615, end: 19991015
  2. CYCLOPHOSPHAMIDE [Suspect]
     Indication: BREAST CANCER
     Dosage: INTRAVENOUS (NOT OTHERWISE SPECIFIED)
     Route: 042
     Dates: start: 19990615, end: 19991015
  3. FEMARA [Suspect]
     Dosage: ORAL
     Route: 048
     Dates: start: 20050415, end: 20050804
  4. FLUOROURACIL [Suspect]
     Indication: BREAST CANCER
     Dosage: INTRAVENOUE (NOT OTHERWISE SPECIFIED)
     Route: 042
     Dates: start: 19990615, end: 19991015
  5. TAMOXIFEN CITRATE [Suspect]
     Indication: BREAST CANCER
     Dosage: INTRAVENOUS (NOT OTHERWISE SPECIFIED)
     Route: 042
     Dates: start: 19991215, end: 20050415
  6. ZELITREX (VALACICLOVIR) [Concomitant]
  7. ZYLORIC (ALLOPURIN) [Concomitant]

REACTIONS (1)
  - ACUTE LEUKAEMIA [None]
